FAERS Safety Report 4905662-8 (Version None)
Quarter: 2006Q1

REPORT INFORMATION
  Report Type: 
  Country: None (occurrence: None)
  Receive Date: 20060208
  Receipt Date: 20060201
  Transmission Date: 20060701
  Serious: Yes (Other)
  Sender: FDA-Public Use
  Company Number: US-ABBOTT-06P-163-0323866-00

PATIENT
  Sex: Female
  Weight: 65.83 kg

DRUGS (1)
  1. MERIDIA [Suspect]
     Indication: WEIGHT CONTROL
     Route: 048
     Dates: start: 20051224, end: 20060124

REACTIONS (3)
  - ABORTION INDUCED [None]
  - BLOOD HUMAN CHORIONIC GONADOTROPIN DECREASED [None]
  - HEADACHE [None]
